FAERS Safety Report 19591297 (Version 1)
Quarter: 2021Q3

REPORT INFORMATION
  Report Type: Spontaneous
  Country: US (occurrence: US)
  Receive Date: 20210721
  Receipt Date: 20210721
  Transmission Date: 20211014
  Serious: Yes (Hospitalization)
  Sender: FDA-Public Use
  Company Number: US-ELI_LILLY_AND_COMPANY-US202107004852

PATIENT
  Age: 75 Year
  Sex: Female

DRUGS (4)
  1. TRULICITY [Suspect]
     Active Substance: DULAGLUTIDE
     Indication: PRODUCT USED FOR UNKNOWN INDICATION
     Dosage: UNK UNK, UNKNOWN
     Route: 065
     Dates: start: 20210704
  2. OZEMPIC [Concomitant]
     Active Substance: SEMAGLUTIDE
     Indication: PRODUCT USED FOR UNKNOWN INDICATION
  3. INSULIN LISPRO [Suspect]
     Active Substance: INSULIN LISPRO
     Indication: TYPE 2 DIABETES MELLITUS
     Dosage: UNK UNK, UNKNOWN (VIA SLIDING SCALE)
     Route: 065
     Dates: start: 2020
  4. TRESIBA [Concomitant]
     Active Substance: INSULIN DEGLUDEC
     Indication: PRODUCT USED FOR UNKNOWN INDICATION

REACTIONS (5)
  - Nausea [Recovering/Resolving]
  - Asthenia [Recovering/Resolving]
  - Gastrointestinal disorder [Not Recovered/Not Resolved]
  - Blood glucose fluctuation [Recovering/Resolving]
  - Accidental underdose [Unknown]

NARRATIVE: CASE EVENT DATE: 20210707
